FAERS Safety Report 14386280 (Version 1)
Quarter: 2018Q1

REPORT INFORMATION
  Report Type: Spontaneous
  Country: US (occurrence: US)
  Receive Date: 20180115
  Receipt Date: 20180115
  Transmission Date: 20180509
  Serious: Yes (Other)
  Sender: FDA-Public Use
  Company Number: US-SA-2017SA089568

PATIENT
  Age: 59 Year
  Sex: Female
  Weight: 79.37 kg

DRUGS (9)
  1. ARIMIDEX [Concomitant]
     Active Substance: ANASTROZOLE
     Route: 065
     Dates: start: 2006, end: 2011
  2. TAXOTERE [Suspect]
     Active Substance: DOCETAXEL
     Indication: BREAST CANCER FEMALE
     Dosage: DOSE: 145 (IT LOOKS LIKE)
     Route: 051
     Dates: start: 20060720, end: 20060720
  3. DOXORUBICIN [Concomitant]
     Active Substance: DOXORUBICIN
     Route: 042
  4. TAXOTERE [Suspect]
     Active Substance: DOCETAXEL
     Indication: BREAST CANCER FEMALE
     Dosage: DOSE: 145 (IT LOOKS LIKE)
     Route: 051
     Dates: start: 20060921, end: 20060921
  5. ARANESP [Concomitant]
     Active Substance: DARBEPOETIN ALFA
     Route: 065
     Dates: start: 20060831, end: 20060831
  6. ARANESP [Concomitant]
     Active Substance: DARBEPOETIN ALFA
     Route: 065
     Dates: start: 20060810, end: 20060810
  7. LOVASTATIN. [Concomitant]
     Active Substance: LOVASTATIN
  8. PRAVASTATIN. [Concomitant]
     Active Substance: PRAVASTATIN
  9. ADRIAMYCIN [Concomitant]
     Active Substance: DOXORUBICIN HYDROCHLORIDE
     Indication: BREAST CANCER FEMALE
     Route: 065

REACTIONS (2)
  - Alopecia [Not Recovered/Not Resolved]
  - Psychological trauma [Unknown]

NARRATIVE: CASE EVENT DATE: 20070321
